FAERS Safety Report 10400006 (Version 2)
Quarter: 2014Q3

REPORT INFORMATION
  Report Type: Spontaneous
  Country: DE (occurrence: DE)
  Receive Date: 20140821
  Receipt Date: 20140918
  Transmission Date: 20150326
  Serious: Yes (Other)
  Sender: FDA-Public Use
  Company Number: DE-TEVA-503525GER

PATIENT
  Age: 16 Year
  Sex: Female
  Weight: 26.4 kg

DRUGS (1)
  1. DIAZEPAM-RATIOPHARM 10 MG/ML TROPFEN ZUM EINNEHMEN [Suspect]
     Active Substance: DIAZEPAM
     Indication: MOVEMENT DISORDER
     Dosage: 12 MILLIGRAM DAILY;
     Route: 048
     Dates: start: 20140808

REACTIONS (2)
  - Thrombocytopenia [Not Recovered/Not Resolved]
  - Leukopenia [Not Recovered/Not Resolved]

NARRATIVE: CASE EVENT DATE: 20140820
